FAERS Safety Report 20010977 (Version 1)
Quarter: 2021Q4

REPORT INFORMATION
  Report Type: Spontaneous
  Country: US (occurrence: US)
  Receive Date: 20211029
  Receipt Date: 20211029
  Transmission Date: 20220304
  Serious: Yes (Other)
  Sender: FDA-Public Use
  Company Number: None

PATIENT
  Sex: Female
  Weight: 45 kg

DRUGS (1)
  1. ALPRAZOLAM [Suspect]
     Active Substance: ALPRAZOLAM
     Indication: Insomnia
     Dates: start: 20131105, end: 20151029

REACTIONS (23)
  - Depression [None]
  - Malaise [None]
  - Decreased appetite [None]
  - Fatigue [None]
  - Constipation [None]
  - Eye disorder [None]
  - Insomnia [None]
  - Emotional disorder [None]
  - Nightmare [None]
  - Depersonalisation/derealisation disorder [None]
  - Cognitive disorder [None]
  - Depressed level of consciousness [None]
  - Facial pain [None]
  - Abdominal pain upper [None]
  - Abdominal pain [None]
  - Irritability [None]
  - Amnesia [None]
  - Communication disorder [None]
  - Decreased interest [None]
  - Malaise [None]
  - Anxiety [None]
  - Fatigue [None]
  - Personal relationship issue [None]
